FAERS Safety Report 22060286 (Version 1)
Quarter: 2023Q1

REPORT INFORMATION
  Report Type: Spontaneous
  Country: US (occurrence: US)
  Receive Date: 20230303
  Receipt Date: 20230303
  Transmission Date: 20230417
  Serious: No
  Sender: FDA-Public Use
  Company Number: US-VYERA PHARMACEUTICALS, LLC-2022VYE00020

PATIENT
  Age: 6 Year
  Sex: Male
  Weight: 56.236 kg

DRUGS (4)
  1. DARAPRIM [Suspect]
     Active Substance: PYRIMETHAMINE
     Indication: Toxoplasmosis
     Dosage: 75 MG, 1X/DAY
     Route: 048
     Dates: start: 20220824, end: 20220825
  2. DARAPRIM [Suspect]
     Active Substance: PYRIMETHAMINE
     Dosage: 75 MG, EVERY 48 HOURS (EVERY OTHER DAY)
     Route: 048
     Dates: start: 20220826
  3. UNSPECIFIED INGREDIENT [Suspect]
     Active Substance: UNSPECIFIED INGREDIENT
  4. LEUCOVORIN [Concomitant]
     Active Substance: LEUCOVORIN
     Dosage: UNK
     Dates: start: 20220824

REACTIONS (2)
  - Nausea [Recovering/Resolving]
  - Off label use [Not Recovered/Not Resolved]

NARRATIVE: CASE EVENT DATE: 20220801
